FAERS Safety Report 13620438 (Version 1)
Quarter: 2017Q2

REPORT INFORMATION
  Report Type: Spontaneous
  Country: US (occurrence: US)
  Receive Date: 20170607
  Receipt Date: 20170607
  Transmission Date: 20170830
  Serious: Yes (Hospitalization)
  Sender: FDA-Public Use
  Company Number: US-BAUSCH-BL-2017-018384

PATIENT
  Age: 61 Year
  Sex: Female

DRUGS (2)
  1. RUCONEST [Suspect]
     Active Substance: HUMAN C1-ESTERASE INHIBITOR
     Indication: HEREDITARY ANGIOEDEMA
     Route: 042
     Dates: start: 20170523
  2. RUCONEST [Suspect]
     Active Substance: HUMAN C1-ESTERASE INHIBITOR
     Route: 042
     Dates: start: 20170531

REACTIONS (5)
  - Injection site pain [Unknown]
  - Hospitalisation [Recovered/Resolved]
  - Vein rupture [Unknown]
  - Injection site induration [Unknown]
  - Injection site haematoma [Unknown]

NARRATIVE: CASE EVENT DATE: 20170529
